FAERS Safety Report 10080239 (Version 3)
Quarter: 2014Q2

REPORT INFORMATION
  Report Type: Spontaneous
  Country: US (occurrence: US)
  Receive Date: 20140415
  Receipt Date: 20140616
  Transmission Date: 20141212
  Serious: Yes (Hospitalization)
  Sender: FDA-Public Use
  Company Number: US-BAXTER-2014BAX017466

PATIENT
  Sex: Female

DRUGS (7)
  1. DIANEAL PD2 [Suspect]
     Indication: PERITONEAL DIALYSIS
     Route: 033
  2. DIANEAL LOW CALCIUM [Suspect]
     Indication: RENAL FAILURE CHRONIC
     Route: 033
     Dates: start: 20130205
  3. DIANEAL LOW CALCIUM [Suspect]
     Dosage: LAST BAG FILL
     Route: 033
     Dates: start: 20140123
  4. DIANEAL LOW CALCIUM [Suspect]
     Indication: RENAL FAILURE CHRONIC
     Route: 033
     Dates: start: 20130205
  5. DIANEAL LOW CALCIUM [Suspect]
     Dosage: LAST BAG FILL
     Route: 033
     Dates: start: 20140123
  6. DIANEAL LOW CALCIUM [Suspect]
     Indication: RENAL FAILURE CHRONIC
     Route: 033
     Dates: start: 20130205
  7. DIANEAL LOW CALCIUM [Suspect]
     Dosage: LAST BAG FILL
     Route: 033
     Dates: start: 20140123

REACTIONS (1)
  - Abdominal hernia [Recovering/Resolving]
